FAERS Safety Report 7689615-5 (Version None)
Quarter: 2011Q3

REPORT INFORMATION
  Report Type: 
  Country: None (occurrence: None)
  Receive Date: 20110817
  Receipt Date: 20110724
  Transmission Date: 20111222
  Serious: No
  Sender: FDA-Public Use
  Company Number: US-BAYER-2011-064572

PATIENT
  Age: 46 Year
  Sex: Female

DRUGS (3)
  1. PROVERA [Concomitant]
  2. ESTROGENIC SUBSTANCE [Concomitant]
     Dosage: UNK
  3. ANGELIQ [Suspect]
     Indication: HOT FLUSH
     Dosage: 0,5MG/1,0MG
     Route: 048
     Dates: start: 20110712

REACTIONS (1)
  - MENORRHAGIA [None]
